FAERS Safety Report 4838451-3 (Version None)
Quarter: 2005Q4

REPORT INFORMATION
  Report Type: 
  Country: None (occurrence: None)
  Receive Date: 20051123
  Receipt Date: 20051108
  Transmission Date: 20060501
  Serious: Yes (Other)
  Sender: FDA-Public Use
  Company Number: 2005PV003959

PATIENT
  Age: 53 Year
  Sex: Male
  Weight: 118.8424 kg

DRUGS (10)
  1. BYETTA [Suspect]
     Indication: DIABETES MELLITUS NON-INSULIN-DEPENDENT
     Dosage: 10 MCG; BID
     Dates: start: 20050801
  2. HYDROCHLOROTHIAZIDE [Suspect]
     Dosage: 25 MG;QD;PO
     Route: 048
  3. ZOCOR [Suspect]
     Dosage: 20 MG;QD;PO
     Route: 048
     Dates: end: 20051107
  4. GLUCOTROL XL [Suspect]
     Dosage: 10 MG;QD;PO
     Route: 048
     Dates: end: 20051107
  5. LOTENSIN [Concomitant]
  6. GLUCOPHAGE [Concomitant]
  7. ASPIRIN [Concomitant]
  8. VIAGRA [Concomitant]
  9. ADVIL [Concomitant]
  10. MULTI-VITAMINS [Concomitant]

REACTIONS (1)
  - PANCREATITIS [None]
